FAERS Safety Report 6269241-5 (Version None)
Quarter: 2009Q3

REPORT INFORMATION
  Report Type: 
  Country: None (occurrence: None)
  Receive Date: 20090715
  Receipt Date: 20090713
  Transmission Date: 20100115
  Serious: Yes (Death, Other)
  Sender: FDA-Public Use
  Company Number: IT-ROXANE LABORATORIES, INC.-2009-RO-00677RO

PATIENT
  Age: 44 Year
  Sex: Female

DRUGS (6)
  1. DEXAMETHASONE [Suspect]
     Indication: ACUTE DISSEMINATED ENCEPHALOMYELITIS
     Dosage: 24 MG
     Route: 042
  2. DEXAMETHASONE [Suspect]
     Dosage: 8 MG
     Route: 042
  3. AMPICILLIN [Suspect]
     Indication: LUNG DISORDER
     Dosage: 12 G
     Route: 042
  4. CEFOTAXIME [Suspect]
     Indication: LUNG DISORDER
     Dosage: 6 G
     Route: 042
  5. AMPHOTERICIN B [Suspect]
     Indication: BRAIN ABSCESS
     Dosage: 50 MG
     Route: 042
  6. AMPHOTERICIN B [Suspect]
     Indication: ASPERGILLOSIS
     Dosage: 150 MG
     Route: 042

REACTIONS (9)
  - ASPERGILLOSIS [None]
  - BLOOD POTASSIUM DECREASED [None]
  - BLOOD SODIUM DECREASED [None]
  - BRAIN ABSCESS [None]
  - COMA [None]
  - HYPERGLYCAEMIA [None]
  - HYPERTONIA [None]
  - LUNG DISORDER [None]
  - OESOPHAGEAL CANDIDIASIS [None]
